FAERS Safety Report 13226180 (Version 1)
Quarter: 2017Q1

REPORT INFORMATION
  Report Type: Spontaneous
  Country: FR (occurrence: FR)
  Receive Date: 20170213
  Receipt Date: 20170213
  Transmission Date: 20170428
  Serious: Yes (Hospitalization)
  Sender: FDA-Public Use
  Company Number: FR-PFIZER INC-2017055523

PATIENT
  Age: 72 Year
  Sex: Male

DRUGS (33)
  1. ADRIBLASTINE [Suspect]
     Active Substance: DOXORUBICIN
     Dosage: 80 MG, EVERY 3 WEEKS
     Dates: start: 20161110
  2. VINCRISTINE SULFATE. [Suspect]
     Active Substance: VINCRISTINE SULFATE
     Dosage: 2 MG, EVERY 3 WEEKS
     Dates: start: 20160929
  3. VINCRISTINE SULFATE. [Suspect]
     Active Substance: VINCRISTINE SULFATE
     Dosage: 2 MG, EVERY 3 WEEKS
     Dates: start: 20161020
  4. ENDOXAN /00021101/ [Suspect]
     Active Substance: CYCLOPHOSPHAMIDE
     Dosage: 1200 MG, EVERY 3 WEEKS
     Dates: start: 20160902
  5. ENDOXAN /00021101/ [Suspect]
     Active Substance: CYCLOPHOSPHAMIDE
     Dosage: 1200 MG, EVERY 3 WEEKS
     Dates: start: 20161110
  6. SOLUPRED /00016201/ [Concomitant]
     Active Substance: PREDNISOLONE
  7. VINCRISTINE SULFATE. [Suspect]
     Active Substance: VINCRISTINE SULFATE
     Dosage: 2 MG, EVERY 3 WEEKS
     Dates: start: 20170113
  8. ENDOXAN /00021101/ [Suspect]
     Active Substance: CYCLOPHOSPHAMIDE
     Indication: DIFFUSE LARGE B-CELL LYMPHOMA RECURRENT
     Dosage: 530 MG, EVERY 3 WEEKS
     Route: 042
     Dates: start: 20160826
  9. MABTHERA [Suspect]
     Active Substance: RITUXIMAB
     Dosage: 600 MG, EVERY 3 WEEKS
     Dates: start: 20161110
  10. PRIMPERAN [Concomitant]
     Active Substance: METOCLOPRAMIDE HYDROCHLORIDE
     Route: 048
  11. ADRIBLASTINE [Suspect]
     Active Substance: DOXORUBICIN
     Indication: DIFFUSE LARGE B-CELL LYMPHOMA RECURRENT
     Dosage: 88 MG, EVERY 3 WEEKS
     Route: 042
     Dates: start: 20160902
  12. MABTHERA [Suspect]
     Active Substance: RITUXIMAB
     Dosage: 600 MG, EVERY 3 WEEKS
     Dates: start: 20161020
  13. ADRIBLASTINE [Suspect]
     Active Substance: DOXORUBICIN
     Dosage: 80 MG, EVERY 3 WEEKS
     Dates: start: 20161020
  14. VINCRISTINE SULFATE. [Suspect]
     Active Substance: VINCRISTINE SULFATE
     Dosage: 2 MG, EVERY 3 WEEKS
     Dates: start: 20161201
  15. MABTHERA [Suspect]
     Active Substance: RITUXIMAB
     Indication: DIFFUSE LARGE B-CELL LYMPHOMA RECURRENT
     Dosage: 660 MG, EVERY 3 WEEKS
     Route: 042
     Dates: start: 20160902
  16. EUPANTOL [Concomitant]
     Active Substance: PANTOPRAZOLE SODIUM
     Route: 048
  17. CONTRAMAL [Concomitant]
     Active Substance: TRAMADOL HYDROCHLORIDE
     Route: 048
  18. METHOTREXATE SODIUM. [Concomitant]
     Active Substance: METHOTREXATE SODIUM
  19. ADRIBLASTINE [Suspect]
     Active Substance: DOXORUBICIN
     Dosage: 80 MG, EVERY 3 WEEKS
     Dates: start: 20160929
  20. VINCRISTINE SULFATE. [Suspect]
     Active Substance: VINCRISTINE SULFATE
     Dosage: 2 MG, EVERY 3 WEEKS
     Dates: start: 20161110
  21. ENDOXAN /00021101/ [Suspect]
     Active Substance: CYCLOPHOSPHAMIDE
     Dosage: 1200 MG, EVERY 3 WEEKS
     Dates: start: 20161201
  22. ENDOXAN /00021101/ [Suspect]
     Active Substance: CYCLOPHOSPHAMIDE
     Dosage: 1320 MG, EVERY 3 WEEKS
     Dates: start: 20160902
  23. ENDOXAN /00021101/ [Suspect]
     Active Substance: CYCLOPHOSPHAMIDE
     Dosage: 1240 MG, EVERY 3 WEEKS
     Dates: start: 20170113
  24. MABTHERA [Suspect]
     Active Substance: RITUXIMAB
     Dosage: 600 MG, EVERY 3 WEEKS
     Dates: start: 20161201
  25. EPOETIN THETA [Concomitant]
     Active Substance: ERYTHROPOIETIN
  26. ADRIBLASTINE [Suspect]
     Active Substance: DOXORUBICIN
     Dosage: 82 MG, EVERY 3 WEEKS
     Dates: start: 20170113
  27. MABTHERA [Suspect]
     Active Substance: RITUXIMAB
     Dosage: 600 MG, EVERY 3 WEEKS
     Dates: start: 20160929
  28. ADRIBLASTINE [Suspect]
     Active Substance: DOXORUBICIN
     Dosage: 80 MG, EVERY 3 WEEKS
     Dates: start: 20161201
  29. VINCRISTINE SULFATE. [Suspect]
     Active Substance: VINCRISTINE SULFATE
     Indication: DIFFUSE LARGE B-CELL LYMPHOMA RECURRENT
     Dosage: 1.75 MG, EVERY 3 WEEKS
     Route: 042
     Dates: start: 20160826
  30. ENDOXAN /00021101/ [Suspect]
     Active Substance: CYCLOPHOSPHAMIDE
     Dosage: 1200 MG, EVERY 3 WEEKS
     Dates: start: 20161020
  31. ZELITREX [Concomitant]
     Active Substance: VALACYCLOVIR HYDROCHLORIDE
     Route: 048
  32. NIVESTIM [Concomitant]
     Active Substance: FILGRASTIM
  33. AMLOR [Concomitant]
     Active Substance: AMLODIPINE BESYLATE

REACTIONS (1)
  - Interstitial lung disease [Not Recovered/Not Resolved]

NARRATIVE: CASE EVENT DATE: 20161126
